FAERS Safety Report 5222555-X (Version None)
Quarter: 2007Q1

REPORT INFORMATION
  Report Type: 
  Country: None (occurrence: None)
  Receive Date: 20070129
  Receipt Date: 20070116
  Transmission Date: 20070707
  Serious: Yes (Other)
  Sender: FDA-Public Use
  Company Number: US-ELI_LILLY_AND_COMPANY-US200610005504

PATIENT
  Age: 78 Year
  Sex: Female
  Weight: 70.294 kg

DRUGS (3)
  1. ACTONEL                                 /USA/ [Concomitant]
     Indication: OSTEOPOROSIS
     Dosage: 35 MG, WEEKLY (1/W)
     Dates: start: 20050131, end: 20060515
  2. OSCAL 500-D [Concomitant]
     Dosage: UNK, UNKNOWN
     Route: 065
  3. EVISTA [Suspect]
     Indication: OSTEOPOROSIS
     Dosage: 60 MG, DAILY (1/D)
     Route: 048
     Dates: start: 20010101, end: 20061113

REACTIONS (3)
  - COMPRESSION FRACTURE [None]
  - GASTRIC DISORDER [None]
  - SPINAL FRACTURE [None]
